FAERS Safety Report 24165549 (Version 1)
Quarter: 2024Q3

REPORT INFORMATION
  Report Type: Spontaneous
  Country: US (occurrence: US)
  Receive Date: 20240802
  Receipt Date: 20240802
  Transmission Date: 20241017
  Serious: No
  Sender: VERRICA PHARMACEUTICALS
  Company Number: US-VERRICA PHARMACEUTICALS INC.-2024VER000033

PATIENT

DRUGS (1)
  1. YCANTH [Suspect]
     Active Substance: CANTHARIDIN
     Indication: Molluscum contagiosum
     Dosage: UNK, ONCE
     Route: 061
     Dates: start: 202404, end: 202404

REACTIONS (2)
  - Urticaria [Recovered/Resolved]
  - Hypersensitivity [Recovered/Resolved]

NARRATIVE: CASE EVENT DATE: 20240401
